FAERS Safety Report 19640896 (Version 1)
Quarter: 2021Q3

REPORT INFORMATION
  Report Type: Spontaneous
  Country: US (occurrence: US)
  Receive Date: 20210730
  Receipt Date: 20210730
  Transmission Date: 20211014
  Serious: Yes (Other)
  Sender: FDA-Public Use
  Company Number: US-BIOHAVEN PHARMACEUTICALS-2021BHV00785

PATIENT
  Sex: Female
  Weight: 115.65 kg

DRUGS (5)
  1. BOTOX [Concomitant]
     Active Substance: ONABOTULINUMTOXINA
  2. UNSPECIFIED 14 MEDICATIONS [Concomitant]
  3. NURTEC ODT [Suspect]
     Active Substance: RIMEGEPANT SULFATE
     Indication: MIGRAINE
     Dosage: 75 MG, AS NEEDED
     Route: 048
     Dates: start: 202101
  4. UNSPECIFIED IMMUNOSUPPRESSANTS [Concomitant]
     Active Substance: UNSPECIFIED INGREDIENT
  5. KESIMPTA [Suspect]
     Active Substance: OFATUMUMAB
     Dosage: UNK

REACTIONS (1)
  - Neoplasm [Unknown]

NARRATIVE: CASE EVENT DATE: 2021
